FAERS Safety Report 8616453-9 (Version None)
Quarter: 2012Q3

REPORT INFORMATION
  Report Type: 
  Country: None (occurrence: None)
  Receive Date: 20120823
  Receipt Date: 20120816
  Transmission Date: 20120928
  Serious: Yes (Hospitalization)
  Sender: FDA-Public Use
  Company Number: JP-009507513-2011SP053388

PATIENT

DRUGS (77)
  1. RIBAVIRIN [Suspect]
     Dosage: UNK UNK, UNKNOWN
     Route: 065
     Dates: start: 20110902, end: 20110908
  2. RIBAVIRIN [Suspect]
     Dosage: UNK UNK, UNKNOWN
     Route: 065
     Dates: start: 20111102, end: 20111109
  3. RIBAVIRIN [Suspect]
     Dosage: UNK UNK, UNKNOWN
     Route: 065
     Dates: start: 20111224, end: 20111224
  4. KINEDAK [Concomitant]
     Indication: NEUROPATHY PERIPHERAL
     Dosage: TOTAL DAILY DOSE: 150 MG: PREVENTION OF PERIPHERAL NEUROPATHY
     Route: 048
     Dates: start: 20110803
  5. PLACEBO [Suspect]
     Indication: HEPATITIS C
     Dosage: UNK
     Dates: start: 20110902
  6. PEGINTERFERON ALFA-2B [Suspect]
     Indication: HEPATITIS C
     Dosage: UNK
     Dates: start: 20110920
  7. RIBAVIRIN [Suspect]
     Dosage: UNK UNK, UNKNOWN
     Route: 065
     Dates: start: 20110930, end: 20111006
  8. RIBAVIRIN [Suspect]
     Dosage: UNK UNK, UNKNOWN
     Route: 065
     Dates: start: 20111029, end: 20111102
  9. RIBAVIRIN [Suspect]
     Dosage: UNK UNK, UNKNOWN
     Route: 065
     Dates: start: 20111111, end: 20111117
  10. RIBAVIRIN [Suspect]
     Dosage: UNK UNK, UNKNOWN
     Route: 065
     Dates: start: 20111110, end: 20111116
  11. RIBAVIRIN [Suspect]
     Dosage: UNK UNK, UNKNOWN
     Route: 065
     Dates: start: 20111231, end: 20120116
  12. RIBAVIRIN [Suspect]
     Dosage: UNK UNK, UNKNOWN
     Route: 065
     Dates: start: 20120119, end: 20120215
  13. RIBAVIRIN [Suspect]
     Dosage: UNK UNK, UNKNOWN
     Route: 065
     Dates: start: 20120216, end: 20120314
  14. ZOLPIDEM [Concomitant]
     Indication: INSOMNIA
     Dosage: TOTAL DAILY DOSE: 10 MG, UPDATE (21FEB2012): STOP DATE
     Route: 048
     Dates: start: 20110803, end: 20120215
  15. BASEN [Concomitant]
     Dosage: TOTAL DAILY DOSE: 0.6 MG
     Route: 048
     Dates: start: 20110916
  16. RIBAVIRIN [Suspect]
     Dosage: UNK UNK, UNKNOWN
     Route: 065
     Dates: start: 20111014, end: 20111023
  17. RIBAVIRIN [Suspect]
     Dosage: UNK UNK, UNKNOWN
     Route: 065
     Dates: start: 20111024, end: 20111027
  18. RIBAVIRIN [Suspect]
     Dosage: UNK UNK, UNKNOWN
     Route: 065
     Dates: start: 20111103, end: 20111110
  19. RIBAVIRIN [Suspect]
     Dosage: UNK UNK, UNKNOWN
     Route: 065
     Dates: start: 20111117, end: 20111123
  20. RIBAVIRIN [Suspect]
     Dosage: UNK UNK, UNKNOWN
     Route: 065
     Dates: start: 20111124, end: 20111206
  21. RIBAVIRIN [Suspect]
     Dosage: UNK UNK, UNKNOWN
     Route: 065
     Dates: start: 20120216, end: 20120315
  22. RIBAVIRIN [Suspect]
     Dosage: UNK UNK, UNKNOWN
     Route: 065
     Dates: start: 20120502, end: 20120509
  23. RIBAVIRIN [Suspect]
     Dosage: UNK UNK, UNKNOWN
     Route: 065
     Dates: start: 20120510, end: 20120606
  24. ESTAZOLAM [Concomitant]
     Indication: INSOMNIA
     Dosage: TOTAL DAILY DOSE: 2 MG. UPDATE (19JAN2012): TOTAL DAILY DOSE: 4 MG
     Route: 048
     Dates: start: 20110803
  25. [COMPOSITION UNSPECIFIED] [Concomitant]
     Indication: PRODUCT USED FOR UNKNOWN INDICATION
     Dosage: UPDATE (21FEB2012)
     Dates: start: 20120216
  26. DIAZEPAM [Concomitant]
     Indication: PRODUCT USED FOR UNKNOWN INDICATION
     Dosage: UPDATE (10JUN2012)
     Route: 065
     Dates: start: 20120607
  27. RIBAVIRIN [Suspect]
     Dosage: UNK UNK, UNKNOWN
     Route: 065
     Dates: start: 20110903, end: 20110909
  28. RIBAVIRIN [Suspect]
     Dosage: UNK UNK, UNKNOWN
     Route: 065
     Dates: start: 20110923, end: 20110930
  29. RIBAVIRIN [Suspect]
     Dosage: UNK UNK, UNKNOWN
     Route: 065
     Dates: start: 20111007, end: 20111013
  30. RIBAVIRIN [Suspect]
     Dosage: UNK UNK, UNKNOWN
     Route: 065
     Dates: start: 20111124, end: 20111222
  31. RIBAVIRIN [Suspect]
     Dosage: UNK UNK, UNKNOWN
     Route: 065
     Dates: start: 20111223, end: 20111223
  32. RIBAVIRIN [Suspect]
     Dosage: UNK UNK, UNKNOWN
     Route: 065
     Dates: start: 20120117, end: 20120118
  33. RIBAVIRIN [Suspect]
     Dosage: UNK UNK, UNKNOWN
     Route: 065
     Dates: start: 20120413, end: 20120510
  34. DR. SCHOLL'S MEDICATED FOOT POWDER [Concomitant]
     Indication: DERMATITIS
     Dosage: UPDATE (07DEC2011): TOTAL DAILY DOSE: 4 G, UPDATE (21FEB2012): STOP DATE
     Route: 003
     Dates: start: 20111205, end: 20120117
  35. PREDNISOLONE [Concomitant]
     Indication: DERMATITIS
     Dosage: UPDATE (19JAN2012): LIDOMEX KOWA OINTMENT 0.3%
     Route: 065
     Dates: start: 20120118
  36. DIFLUCORTOLONE VALERATE (+) LIDOCAINE [Concomitant]
     Indication: PRODUCT USED FOR UNKNOWN INDICATION
     Dosage: UPDATE (05APR2012)
     Route: 065
     Dates: start: 20120223, end: 20120307
  37. POSTERISAN FORTE [Concomitant]
     Indication: PRODUCT USED FOR UNKNOWN INDICATION
     Dosage: UPDATE (05APR2012)
     Route: 065
     Dates: start: 20120308
  38. RIBAVIRIN [Suspect]
     Dosage: UNK UNK, UNKNOWN
     Route: 065
     Dates: start: 20110909, end: 20110915
  39. RIBAVIRIN [Suspect]
     Dosage: UNK UNK, UNKNOWN
     Route: 065
     Dates: start: 20110917, end: 20110922
  40. RIBAVIRIN [Suspect]
     Dosage: UNK UNK, UNKNOWN
     Route: 065
     Dates: start: 20111222, end: 20111222
  41. RIBAVIRIN [Suspect]
     Dosage: UNK UNK, UNKNOWN
     Route: 065
     Dates: start: 20111230, end: 20111230
  42. RIBAVIRIN [Suspect]
     Dosage: UNK UNK, UNKNOWN
     Route: 065
     Dates: start: 20120119, end: 20120119
  43. RIBAVIRIN [Suspect]
     Dosage: UNK UNK, UNKNOWN
     Route: 065
     Dates: start: 20120511, end: 20120607
  44. MAGLAX (MAGNESIUM OXIDE) [Concomitant]
     Indication: CONSTIPATION
     Dosage: TOTAL DAILY DOSE: 1500 MG
     Route: 048
     Dates: start: 20110803
  45. TRIBENOSIDE [Concomitant]
     Indication: PRODUCT USED FOR UNKNOWN INDICATION
     Dosage: UPDATE (21FEB2012)
     Dates: start: 20120216, end: 20120229
  46. RIBAVIRIN [Suspect]
     Dosage: UNK UNK, UNKNOWN
     Route: 065
     Dates: start: 20111025, end: 20111028
  47. RIBAVIRIN [Suspect]
     Dosage: UNK UNK, UNKNOWN
     Route: 065
     Dates: start: 20120117, end: 20120117
  48. RIBAVIRIN [Suspect]
     Dosage: UNK UNK, UNKNOWN
     Route: 065
     Dates: start: 20111223, end: 20120116
  49. RIBAVIRIN [Suspect]
     Dosage: UNK UNK, UNKNOWN
     Route: 065
     Dates: start: 20120316, end: 20120412
  50. RIBAVIRIN [Suspect]
     Dosage: UNK UNK, UNKNOWN
     Route: 065
     Dates: start: 20120315, end: 20120411
  51. BASEN [Concomitant]
     Indication: DIABETES MELLITUS
     Dosage: TOTAL DAILY DOSE: 0.6 MG
     Route: 048
     Dates: start: 20110803, end: 20110915
  52. RINDERON V [Concomitant]
     Indication: ECZEMA
     Dosage: TOTAL DAILY DOSE: 0.5 GM, INDICATION: ECZEMA OF EAR CANAL
     Route: 003
     Dates: start: 20110928
  53. LENDORMIN [Concomitant]
     Indication: PRODUCT USED FOR UNKNOWN INDICATION
     Dosage: UPDATE (21FEB2012), UPDATE (22MAY2012): STOP DATE
     Dates: start: 20120216, end: 20120425
  54. RIBAVIRIN [Suspect]
     Indication: HEPATITIS C
     Dosage: 600 MG, QD
     Route: 065
     Dates: start: 20110902, end: 20110902
  55. RIBAVIRIN [Suspect]
     Dosage: UNK UNK, UNKNOWN
     Route: 065
     Dates: start: 20110910, end: 20110916
  56. RIBAVIRIN [Suspect]
     Dosage: UNK UNK, UNKNOWN
     Route: 065
     Dates: start: 20110916, end: 20110921
  57. RIBAVIRIN [Suspect]
     Dosage: UNK UNK, UNKNOWN
     Route: 065
     Dates: start: 20111207, end: 20111221
  58. RIBAVIRIN [Suspect]
     Dosage: UNK UNK, UNKNOWN
     Route: 065
     Dates: start: 20111225, end: 20111225
  59. RIBAVIRIN [Suspect]
     Dosage: UNK UNK, UNKNOWN
     Route: 065
     Dates: start: 20120120, end: 20120215
  60. RIBAVIRIN [Suspect]
     Dosage: UNK UNK, UNKNOWN
     Route: 065
     Dates: start: 20120412, end: 20120501
  61. LORFENAMIN [Concomitant]
     Indication: PYREXIA
     Dosage: TOTAL DAILY DOSE: 60 MG, INDICATION: FEVER UP, MYALGIA AND ARHTRALGIA
     Route: 048
     Dates: start: 20110902
  62. REBAMIPIDE [Concomitant]
     Indication: DYSPEPSIA
     Dosage: 100 MG, PRN
     Route: 048
     Dates: start: 20110902
  63. KERATINAMIN [Concomitant]
     Indication: DERMATITIS
     Dosage: UPDATE (27NOV2011): TOTAL DAILY DOSE: 5 G, UPDATE (21FEB2012): STOP DATE
     Route: 003
     Dates: start: 20111122, end: 20120117
  64. PREDNISOLONE [Concomitant]
     Dosage: UPDATE (19JAN2012): LIDOMEX KOWA LOTION 0.3%
     Route: 065
     Dates: start: 20120118
  65. RIBAVIRIN [Suspect]
     Dosage: UNK UNK, UNKNOWN
     Route: 065
     Dates: start: 20110922, end: 20110929
  66. RIBAVIRIN [Suspect]
     Dosage: UNK UNK, UNKNOWN
     Route: 065
     Dates: start: 20111001, end: 20111007
  67. RIBAVIRIN [Suspect]
     Dosage: UNK UNK, UNKNOWN
     Route: 065
     Dates: start: 20111008, end: 20111014
  68. RIBAVIRIN [Suspect]
     Dosage: UNK UNK, UNKNOWN
     Route: 065
     Dates: start: 20111015, end: 20111024
  69. RIBAVIRIN [Suspect]
     Dosage: UNK UNK, UNKNOWN
     Route: 065
     Dates: start: 20111028, end: 20111101
  70. RIBAVIRIN [Suspect]
     Dosage: UNK UNK, UNKNOWN
     Route: 065
     Dates: start: 20111118, end: 20111123
  71. RIBAVIRIN [Suspect]
     Dosage: UNK UNK, UNKNOWN
     Route: 065
     Dates: start: 20111226, end: 20111229
  72. RIBAVIRIN [Suspect]
     Dosage: UNK UNK, UNKNOWN
     Route: 065
     Dates: start: 20120118, end: 20120118
  73. FAMOTIDINE [Concomitant]
     Indication: DYSPEPSIA
     Dosage: 20 MG, PRN
     Route: 048
     Dates: start: 20110909, end: 20110912
  74. FAMOTIDINE [Concomitant]
     Dosage: TOTAL DAILY DOSE: 40 MG, FAMOSTAGINE D .UPDATE(15NOV2011) STILL CONTINUING
     Route: 048
     Dates: start: 20110924
  75. NIZORAL [Concomitant]
     Indication: DERMATITIS
     Dosage: UPDATE (07DEC2011): TOTAL DAILY DOSE: 2 G, UPDATE (21FEB2012): STOP DATE
     Route: 003
     Dates: start: 20111205, end: 20120117
  76. HERBS (UNSPECIFIED) [Concomitant]
     Indication: PRODUCT USED FOR UNKNOWN INDICATION
     Dosage: UPDATE (21FEB2012): SHAKU-YAKU-KANZO-TO
     Dates: start: 20120216
  77. BROTIZOLAM [Concomitant]
     Indication: PRODUCT USED FOR UNKNOWN INDICATION
     Dosage: UPDATE (27MAY2012): TRADE NAME BROTIZOLAM OD 0.25MG
     Route: 065
     Dates: start: 20120426

REACTIONS (1)
  - FATIGUE [None]
